FAERS Safety Report 9702874 (Version 1)
Quarter: 2013Q4

REPORT INFORMATION
  Report Type: Spontaneous
  Country: US (occurrence: None)
  Receive Date: 20131120
  Receipt Date: 20131120
  Transmission Date: 20140711
  Serious: Yes (Life-Threatening, Hospitalization)
  Sender: FDA-Public Use
  Company Number: 2013/206

PATIENT
  Age: 58 Year
  Sex: Female

DRUGS (2)
  1. AMLODIPINE [Suspect]
  2. ZOLPIDEM [Suspect]

REACTIONS (9)
  - Hypotension [None]
  - Atrial fibrillation [None]
  - Vasodilatation [None]
  - General physical health deterioration [None]
  - Overdose [None]
  - Vascular rupture [None]
  - Heart rate decreased [None]
  - Blood lactic acid increased [None]
  - Ejection fraction abnormal [None]
